FAERS Safety Report 9002555 (Version 3)
Quarter: 2013Q1

REPORT INFORMATION
  Report Type: Spontaneous
  Country: US (occurrence: US)
  Receive Date: 20130107
  Receipt Date: 20130205
  Transmission Date: 20140127
  Serious: Yes (Hospitalization, Other)
  Sender: FDA-Public Use
  Company Number: US-PFIZER INC-2013001869

PATIENT
  Age: 55 Year
  Sex: Female
  Weight: 90 kg

DRUGS (1)
  1. LYRICA [Suspect]
     Indication: FIBROMYALGIA
     Dosage: 50 (UNIT NOT PROVIDED), 2X/DAY
     Route: 048
     Dates: end: 201110

REACTIONS (6)
  - Pneumothorax [Recovering/Resolving]
  - Staphylococcal infection [Recovering/Resolving]
  - Pneumonia [Recovering/Resolving]
  - Lung abscess [Unknown]
  - Pulmonary fibrosis [Unknown]
  - Gastrointestinal disorder [Unknown]
